FAERS Safety Report 4708416-0 (Version None)
Quarter: 2005Q3

REPORT INFORMATION
  Report Type: 
  Country: None (occurrence: None)
  Receive Date: 20050705
  Receipt Date: 20050629
  Transmission Date: 20060218
  Serious: Yes (Death)
  Sender: FDA-Public Use
  Company Number: THQ2005A00546

PATIENT
  Age: 8 Decade
  Sex: Male

DRUGS (4)
  1. ZOTON CAPSULES (LANSOPRAZOLE) (30 MILLIGRAM, CAPSULES) [Suspect]
     Dates: start: 20010101
  2. FLAVOXATE HYDROCHLORIDE COATED TAB [Suspect]
  3. DIGOXIN [Concomitant]
  4. WARFARIN [Concomitant]

REACTIONS (2)
  - ARRHYTHMIA [None]
  - CARDIAC FAILURE [None]
